FAERS Safety Report 24121661 (Version 2)
Quarter: 2025Q1

REPORT INFORMATION
  Report Type: Report from Study
  Country: US (occurrence: US)
  Receive Date: 20240722
  Receipt Date: 20250225
  Transmission Date: 20250408
  Serious: Yes (Other)
  Sender: JAZZ
  Company Number: US-JAZZ PHARMACEUTICALS-2024-US-002346

PATIENT
  Age: 59 Year
  Sex: Female
  Weight: 56.236 kg

DRUGS (4)
  1. EPIDIOLEX [Suspect]
     Active Substance: CANNABIDIOL
     Indication: Partial seizures
     Dosage: 1.5 MILLILITER, BID
     Dates: start: 20231201
  2. EPIDIOLEX [Suspect]
     Active Substance: CANNABIDIOL
     Indication: Epilepsy
     Dosage: 2 MILLILITER, BID
     Dates: start: 20231201
  3. EPIDIOLEX [Suspect]
     Active Substance: CANNABIDIOL
     Dates: end: 20241201
  4. AMERGE [Concomitant]
     Active Substance: NARATRIPTAN HYDROCHLORIDE

REACTIONS (20)
  - Petit mal epilepsy [Not Recovered/Not Resolved]
  - Generalised tonic-clonic seizure [Not Recovered/Not Resolved]
  - Partial seizures [Not Recovered/Not Resolved]
  - Epilepsy [Not Recovered/Not Resolved]
  - Atonic seizures [Not Recovered/Not Resolved]
  - Seizure [Unknown]
  - Fall [Unknown]
  - Head injury [Unknown]
  - Contusion [Unknown]
  - Dizziness [Unknown]
  - Stress [Unknown]
  - Tremor [Unknown]
  - Memory impairment [Unknown]
  - Somnolence [Unknown]
  - Limb injury [Not Recovered/Not Resolved]
  - Contusion [Recovered/Resolved]
  - Fall [Unknown]
  - Euphoric mood [Unknown]
  - Product taste abnormal [Unknown]
  - Product administration interrupted [Unknown]

NARRATIVE: CASE EVENT DATE: 20240119
